FAERS Safety Report 11136989 (Version 7)
Quarter: 2016Q2

REPORT INFORMATION
  Report Type: Report from Study
  Country: AT (occurrence: AT)
  Receive Date: 20150526
  Receipt Date: 20160420
  Transmission Date: 20160815
  Serious: Yes (Hospitalization, Other)
  Sender: FDA-Public Use
  Company Number: AT-INCYTE CORPORATION-2015IN001720

PATIENT
  Age: 74 Year
  Sex: Male
  Weight: 83 kg

DRUGS (13)
  1. JAKAFI [Suspect]
     Active Substance: RUXOLITINIB
     Dosage: 10 MG, QD
     Route: 065
     Dates: start: 20131004, end: 20140901
  2. ENALAPRIL [Concomitant]
     Active Substance: ENALAPRIL
     Dosage: UNK
     Dates: start: 201212, end: 20160216
  3. PENTOXI [Concomitant]
     Dosage: UNK
     Dates: start: 201201, end: 20160216
  4. JAKAFI [Suspect]
     Active Substance: RUXOLITINIB
     Dosage: 30 MG, UNK
     Route: 065
     Dates: start: 20150904, end: 20160216
  5. ALLOSTAD [Concomitant]
     Dosage: UNK
     Dates: start: 20131105, end: 20160216
  6. APREDNISOLON [Concomitant]
     Active Substance: PREDNISOLONE
     Dosage: UNK
     Dates: start: 20151015
  7. JAKAFI [Suspect]
     Active Substance: RUXOLITINIB
     Indication: MYELOFIBROSIS
     Dosage: 30 MG, QD
     Route: 065
     Dates: start: 20130320, end: 20130927
  8. METOPROLOL. [Concomitant]
     Active Substance: METOPROLOL
     Dosage: UNK
     Dates: start: 20160217
  9. THROMBO ASS [Concomitant]
     Active Substance: ASPIRIN
     Dosage: UNK
     Dates: start: 201212, end: 20151015
  10. ZANIDIP [Concomitant]
     Active Substance: LERCANIDIPINE HYDROCHLORIDE
     Dosage: UNK
     Dates: start: 20160217
  11. JAKAFI [Suspect]
     Active Substance: RUXOLITINIB
     Dosage: 15 MG, QD
     Route: 065
     Dates: start: 20150707, end: 20150903
  12. JAKAFI [Suspect]
     Active Substance: RUXOLITINIB
     Dosage: 30 MG, QD
     Route: 065
     Dates: start: 20140902, end: 20150706
  13. ACEMIN [Concomitant]
     Active Substance: LISINOPRIL
     Dosage: UNK
     Dates: start: 20131105, end: 20160316

REACTIONS (33)
  - Abdominal pain [Unknown]
  - Hypersensitivity [Unknown]
  - Nephrolithiasis [Unknown]
  - Gastrointestinal sounds abnormal [Unknown]
  - Tachycardia [Unknown]
  - Glomerular filtration rate decreased [Unknown]
  - Dehydration [Unknown]
  - Measles [Unknown]
  - Myocardial infarction [Unknown]
  - Ear haemorrhage [Unknown]
  - Flatulence [Unknown]
  - Second primary malignancy [Unknown]
  - Cholelithiasis [Unknown]
  - Squamous cell carcinoma [Unknown]
  - Impaired healing [Unknown]
  - Pneumonia [Recovered/Resolved]
  - Skin cancer [Unknown]
  - Pallor [Unknown]
  - Diarrhoea [Recovered/Resolved]
  - Benign prostatic hyperplasia [Unknown]
  - Constipation [Unknown]
  - Skin turgor decreased [Unknown]
  - Pain [Unknown]
  - General physical health deterioration [Unknown]
  - Anaemia [Unknown]
  - Skin lesion [Unknown]
  - Heart rate increased [Unknown]
  - Epistaxis [Recovered/Resolved]
  - Congenital cystic kidney disease [Unknown]
  - Hyperkalaemia [Unknown]
  - Haematuria [Unknown]
  - Tooth disorder [Unknown]
  - Blood pressure systolic increased [Unknown]

NARRATIVE: CASE EVENT DATE: 20150223
